FAERS Safety Report 12175030 (Version 1)
Quarter: 2016Q1

REPORT INFORMATION
  Report Type: Spontaneous
  Country: US (occurrence: US)
  Receive Date: 20160314
  Receipt Date: 20160314
  Transmission Date: 20160526
  Serious: Yes (Other)
  Sender: FDA-Public Use
  Company Number: US-PFIZER INC-2016133642

PATIENT
  Age: 70 Year
  Sex: Female
  Weight: 49.9 kg

DRUGS (1)
  1. GABAPENTIN. [Suspect]
     Active Substance: GABAPENTIN
     Indication: INJURY
     Dosage: 100 MG, 3X/DAY
     Route: 048

REACTIONS (8)
  - Sciatic nerve injury [Unknown]
  - Dysphagia [Unknown]
  - Product size issue [Unknown]
  - Drug ineffective for unapproved indication [Unknown]
  - Road traffic accident [Unknown]
  - Muscle injury [Unknown]
  - Joint injury [Unknown]
  - Pain [Not Recovered/Not Resolved]

NARRATIVE: CASE EVENT DATE: 2016
